FAERS Safety Report 6538928-9 (Version None)
Quarter: 2010Q1

REPORT INFORMATION
  Report Type: 
  Country: None (occurrence: None)
  Receive Date: 20100115
  Receipt Date: 20100106
  Transmission Date: 20100710
  Serious: Yes (Death, Hospitalization, Other)
  Sender: FDA-Public Use
  Company Number: GB-TEVA-220366ISR

PATIENT
  Age: 63 Year
  Sex: Male

DRUGS (2)
  1. SIMVASTATIN [Suspect]
     Indication: HYPERCHOLESTEROLAEMIA
     Route: 048
  2. FUSIDIC ACID [Suspect]
     Indication: STAPHYLOCOCCAL INFECTION
     Route: 048

REACTIONS (17)
  - BLOOD CREATINE PHOSPHOKINASE INCREASED [None]
  - CARDIAC ARREST [None]
  - CHROMATURIA [None]
  - COLITIS ISCHAEMIC [None]
  - DIAPHRAGMATIC DISORDER [None]
  - DRUG INTERACTION [None]
  - HYPOTONIA [None]
  - MUSCULAR WEAKNESS [None]
  - MYALGIA [None]
  - MYOCARDIAL INFARCTION [None]
  - MYOGLOBINURIA [None]
  - PERIPHERAL SENSORIMOTOR NEUROPATHY [None]
  - RENAL FAILURE ACUTE [None]
  - RHABDOMYOLYSIS [None]
  - SPLENIC RUPTURE [None]
  - TACHYPNOEA [None]
  - TRACHEAL HAEMORRHAGE [None]
